FAERS Safety Report 25050869 (Version 2)
Quarter: 2025Q2

REPORT INFORMATION
  Report Type: Report from Study
  Country: US (occurrence: US)
  Receive Date: 20250307
  Receipt Date: 20250409
  Transmission Date: 20250717
  Serious: No
  Sender: JOHNSON AND JOHNSON
  Company Number: US-JNJFOC-20250249981

PATIENT
  Age: 63 Year
  Sex: Male
  Weight: 87.7 kg

DRUGS (2)
  1. STELARA [Suspect]
     Active Substance: USTEKINUMAB
     Indication: Psoriatic arthropathy
     Route: 058
     Dates: start: 20241128
  2. STELARA [Suspect]
     Active Substance: USTEKINUMAB
     Dosage: DAY 0 ON (2-FEB-2024), THEN 4 WEEKS LATER (UNKNOWN) AND EVERY 12 WEEKS THEREAFTER
     Route: 058
     Dates: start: 20240220

REACTIONS (3)
  - Needle issue [Unknown]
  - Product dose omission issue [Unknown]
  - Off label use [Unknown]

NARRATIVE: CASE EVENT DATE: 20240101
